FAERS Safety Report 16361527 (Version 1)
Quarter: 2019Q2

REPORT INFORMATION
  Report Type: Spontaneous
  Country: US (occurrence: US)
  Receive Date: 20190528
  Receipt Date: 20190528
  Transmission Date: 20190711
  Serious: No
  Sender: FDA-Public Use
  Company Number: US-PFIZER INC-2019174003

PATIENT
  Age: 64 Year
  Sex: Male
  Weight: 74.84 kg

DRUGS (1)
  1. VFEND [Suspect]
     Active Substance: VORICONAZOLE
     Indication: PULMONARY MYCOSIS
     Dosage: 200 MG, 2X/DAY (12 HOURS)
     Route: 048
     Dates: start: 201901

REACTIONS (1)
  - Vision blurred [Unknown]
